FAERS Safety Report 20407319 (Version 1)
Quarter: 2022Q1

REPORT INFORMATION
  Report Type: Spontaneous
  Country: US (occurrence: None)
  Receive Date: 20220131
  Receipt Date: 20220131
  Transmission Date: 20220423
  Serious: Yes (Hospitalization, Disabling)
  Sender: FDA-Public Use
  Company Number: None

PATIENT
  Sex: Female
  Weight: 76.66 kg

DRUGS (21)
  1. WARFARIN SODIUM [Suspect]
     Active Substance: WARFARIN SODIUM
     Indication: Atrial fibrillation
     Dosage: FREQUENCY : DAILY;?
     Route: 048
     Dates: start: 20210317, end: 20211008
  2. ST. JOSEPH ASPIRIN [Concomitant]
  3. MUCUS RELIEF - GUAIFENESIN [Concomitant]
  4. CETIRIZINE [Concomitant]
     Active Substance: CETIRIZINE HYDROCHLORIDE
  5. COENZYME Q10 [Concomitant]
     Active Substance: DIETARY SUPPLEMENT\UBIDECARENONE
  6. POTASSIUM [Concomitant]
  7. MAGNESIUM [Concomitant]
  8. AZO-CRANBERRY [Concomitant]
  9. ACETAMINOPHEN [Concomitant]
     Active Substance: ACETAMINOPHEN
  10. VITAMIN D2 (ERGO) [Concomitant]
  11. GENERIC-ERGOCALCIFEROL [Concomitant]
  12. PANTOPRAZOLE SODIUM [Concomitant]
     Active Substance: PANTOPRAZOLE SODIUM
  13. METOPROLOL TARTRATE [Concomitant]
     Active Substance: METOPROLOL TARTRATE
  14. OXYBUTYNIN [Concomitant]
     Active Substance: OXYBUTYNIN
  15. GENERIC-OXYBUTYNIN CHLORIDE [Concomitant]
  16. FUROSEMIDE [Concomitant]
     Active Substance: FUROSEMIDE
  17. IPRATROPIUM [Concomitant]
  18. NYSTATIN [Concomitant]
     Active Substance: NYSTATIN
  19. SERTRALINE [Concomitant]
     Active Substance: SERTRALINE HYDROCHLORIDE
  20. BRIMONIDINE [Concomitant]
     Active Substance: BRIMONIDINE TARTRATE
  21. TIMOLOL MAL [Concomitant]

REACTIONS (6)
  - Bedridden [None]
  - Food aversion [None]
  - Asthenia [None]
  - Fall [None]
  - Skin laceration [None]
  - Blood test abnormal [None]
